FAERS Safety Report 24238936 (Version 1)
Quarter: 2024Q3

REPORT INFORMATION
  Report Type: Spontaneous
  Country: US (occurrence: None)
  Receive Date: 20240822
  Receipt Date: 20240822
  Transmission Date: 20241017
  Serious: Yes (Death)
  Sender: Public
  Company Number: None

PATIENT
  Age: 56 Year
  Sex: Male

DRUGS (10)
  1. ZARXIO [Suspect]
     Active Substance: FILGRASTIM-SNDZ
     Indication: Peripheral T-cell lymphoma unspecified
     Dosage: OTHER STRENGTH : 300 MCG/0.5ML;?11 FREQ: INJECT 0.41ML ( 246MCG) UNDER THE SKIN ONCE DAILY?
     Dates: start: 20240207, end: 20240811
  2. ACYCLOVIR [Concomitant]
     Active Substance: ACYCLOVIR
  3. ALBUTEROL [Concomitant]
     Active Substance: ALBUTEROL
  4. ALLOPURINOL [Concomitant]
     Active Substance: ALLOPURINOL
  5. BENZONATATE [Concomitant]
     Active Substance: BENZONATATE
  6. DEXAMETHASONE [Concomitant]
     Active Substance: DEXAMETHASONE
  7. FLUCONAZOLE [Concomitant]
     Active Substance: FLUCONAZOLE
  8. FUROSEMIDE [Concomitant]
     Active Substance: FUROSEMIDE
  9. HYDROCOD/HOM [Concomitant]
  10. LANTUS SOLOS [Concomitant]

REACTIONS (1)
  - Death [None]

NARRATIVE: CASE EVENT DATE: 20240811
